FAERS Safety Report 21066064 (Version 2)
Quarter: 2022Q3

REPORT INFORMATION
  Report Type: Report from Study
  Country: US (occurrence: US)
  Receive Date: 20220711
  Receipt Date: 20220902
  Transmission Date: 20221026
  Serious: Yes (Death, Hospitalization)
  Sender: FDA-Public Use
  Company Number: US-PFIZER INC-202200795300

PATIENT
  Age: 69 Year
  Sex: Male
  Weight: 62.6 kg

DRUGS (4)
  1. SASANLIMAB [Suspect]
     Active Substance: SASANLIMAB
     Indication: Non-small cell lung cancer
     Dosage: 300 MG, EVERY 4 WEEKS (Q4W)
     Route: 058
     Dates: start: 20220519, end: 20220602
  2. ENCORAFENIB [Suspect]
     Active Substance: ENCORAFENIB
     Indication: Non-small cell lung cancer
     Dosage: 450 MG, 1X/DAY(QD)
     Route: 048
     Dates: start: 20220519, end: 20220602
  3. BINIMETINIB [Suspect]
     Active Substance: BINIMETINIB
     Indication: Non-small cell lung cancer
     Dosage: 45 MG, 2X/DAY (BID)
     Route: 048
     Dates: start: 20220519, end: 20220602
  4. TYLENOL [Concomitant]
     Active Substance: ACETAMINOPHEN
     Indication: Pyrexia
     Dosage: 650 MG, AS NEEDED
     Route: 048
     Dates: start: 20220527, end: 20220602

REACTIONS (1)
  - Respiratory failure [Fatal]

NARRATIVE: CASE EVENT DATE: 20220527
